FAERS Safety Report 7994787-9 (Version None)
Quarter: 2011Q4

REPORT INFORMATION
  Report Type: 
  Country: None (occurrence: None)
  Receive Date: 20111220
  Receipt Date: 20111031
  Transmission Date: 20120403
  Serious: Yes (Death, Hospitalization)
  Sender: FDA-Public Use
  Company Number: US-ROCHE-1015583

PATIENT
  Sex: Female
  Weight: 63.2 kg

DRUGS (13)
  1. ESTRADIOL [Concomitant]
     Route: 062
  2. PHENERGAN [Concomitant]
  3. AVASTIN [Suspect]
     Indication: ASTROCYTOMA
     Route: 042
     Dates: start: 20100120, end: 20110914
  4. CARBOPLATIN [Suspect]
     Indication: ASTROCYTOMA
     Route: 042
     Dates: start: 20100121, end: 20110914
  5. PROMETRIUM [Concomitant]
  6. VALIUM [Concomitant]
  7. ZOFRAN [Concomitant]
  8. LAMICTAL [Concomitant]
  9. TRILEPTAL [Concomitant]
  10. ATIVAN [Concomitant]
  11. IRINOTECAN HYDROCHLORIDE [Suspect]
     Indication: ASTROCYTOMA
     Route: 042
     Dates: start: 20100120, end: 20110914
  12. VICODIN [Concomitant]
  13. LOMOTIL [Concomitant]

REACTIONS (5)
  - HYPERTENSION [None]
  - POSTERIOR REVERSIBLE ENCEPHALOPATHY SYNDROME [None]
  - ASTHENIA [None]
  - DISEASE PROGRESSION [None]
  - CONVULSION [None]
